FAERS Safety Report 5113828-X (Version None)
Quarter: 2006Q3

REPORT INFORMATION
  Report Type: 
  Country: None (occurrence: None)
  Receive Date: 20060925
  Receipt Date: 20060915
  Transmission Date: 20061208
  Serious: Yes (Other)
  Sender: FDA-Public Use
  Company Number: PHNR2006AU01245

PATIENT
  Age: 38 Year
  Sex: Female
  Weight: 74 kg

DRUGS (1)
  1. VOLTAREN [Suspect]
     Dosage: (2 X 25MG) 50 MG, TID
     Route: 048
     Dates: start: 20060715, end: 20060715

REACTIONS (1)
  - SCOTOMA [None]
